FAERS Safety Report 15843554 (Version 1)
Quarter: 2019Q1

REPORT INFORMATION
  Report Type: Spontaneous
  Country: US (occurrence: US)
  Receive Date: 20190118
  Receipt Date: 20190118
  Transmission Date: 20190417
  Serious: Yes (Other)
  Sender: FDA-Public Use
  Company Number: None

PATIENT
  Sex: Male

DRUGS (1)
  1. CABOMETYX [Suspect]
     Active Substance: CABOZANTINIB S-MALATE
     Indication: RENAL CANCER
     Route: 048

REACTIONS (9)
  - Fatigue [None]
  - Joint range of motion decreased [None]
  - Erythema [None]
  - Arthralgia [None]
  - Arthritis [None]
  - Glossodynia [None]
  - Pain in extremity [None]
  - Hypokinesia [None]
  - Oral pain [None]
